FAERS Safety Report 11551156 (Version 1)
Quarter: 2015Q3

REPORT INFORMATION
  Report Type: Report from Study
  Country: US (occurrence: US)
  Receive Date: 20150925
  Receipt Date: 20150925
  Transmission Date: 20151125
  Serious: No
  Sender: FDA-Public Use
  Company Number: US-AMGEN-USASL2015096869

PATIENT
  Age: 21 Year
  Sex: Male

DRUGS (1)
  1. ENBREL [Suspect]
     Active Substance: ETANERCEPT
     Indication: JUVENILE IDIOPATHIC ARTHRITIS
     Dosage: 25 MG, Q2WK
     Route: 065
     Dates: start: 2010

REACTIONS (5)
  - Expired product administered [Unknown]
  - Hypoaesthesia [Unknown]
  - Viral infection [Unknown]
  - Hypoaesthesia oral [Unknown]
  - Dizziness [Unknown]

NARRATIVE: CASE EVENT DATE: 2014
